FAERS Safety Report 21279599 (Version 1)
Quarter: 2022Q3

REPORT INFORMATION
  Report Type: Report from Study
  Country: BR (occurrence: BR)
  Receive Date: 20220901
  Receipt Date: 20220901
  Transmission Date: 20221026
  Serious: Yes (Life-Threatening, Hospitalization)
  Sender: FDA-Public Use
  Company Number: BR-AstraZeneca-2022A299392

PATIENT
  Sex: Female
  Weight: 6 kg

DRUGS (6)
  1. SYNAGIS [Suspect]
     Active Substance: PALIVIZUMAB
     Indication: Interventricular septum rupture
     Dates: start: 202203, end: 20220727
  2. PROPRANOLOL HYDROCHLORIDE [Concomitant]
     Active Substance: PROPRANOLOL HYDROCHLORIDE
  3. PHENOBARBITAL [Concomitant]
     Active Substance: PHENOBARBITAL
  4. CAPTOPRIL [Concomitant]
     Active Substance: CAPTOPRIL
  5. FUROSEMIDE [Concomitant]
     Active Substance: FUROSEMIDE
  6. SPIRONOLACTONE [Concomitant]
     Active Substance: SPIRONOLACTONE

REACTIONS (6)
  - Seizure [Unknown]
  - Bronchiolitis [Unknown]
  - Gastrointestinal bacterial infection [Unknown]
  - Diarrhoea [Unknown]
  - Cardiac disorder [Unknown]
  - Influenza [Recovering/Resolving]

NARRATIVE: CASE EVENT DATE: 20220101
